FAERS Safety Report 4898690-2 (Version None)
Quarter: 2006Q1

REPORT INFORMATION
  Report Type: 
  Country: None (occurrence: None)
  Receive Date: 20060202
  Receipt Date: 20060126
  Transmission Date: 20060701
  Serious: Yes (Other)
  Sender: FDA-Public Use
  Company Number: US-BRISTOL-MYERS SQUIBB COMPANY-13262621

PATIENT
  Sex: Male

DRUGS (6)
  1. SUSTIVA [Suspect]
     Dates: start: 20060107, end: 20060101
  2. TRUVADA [Suspect]
     Dosage: EMTRICITABINE 200 MG TENOFOVIR DF 300 MG ONCE DAILY
     Dates: start: 20060107, end: 20060101
  3. AMLODIPINE [Concomitant]
  4. GABAPENTIN [Concomitant]
  5. TAMSULOSIN HCL [Concomitant]
  6. METOPROLOL [Concomitant]

REACTIONS (2)
  - HEADACHE [None]
  - HYPERTENSION [None]
